FAERS Safety Report 12269176 (Version 2)
Quarter: 2016Q2

REPORT INFORMATION
  Report Type: Report from Study
  Country: BR (occurrence: BR)
  Receive Date: 20160414
  Receipt Date: 20160426
  Transmission Date: 20160815
  Serious: Yes (Other)
  Sender: FDA-Public Use
  Company Number: PHHY2016BR049369

PATIENT
  Age: 55 Year
  Sex: Male
  Weight: 67 kg

DRUGS (5)
  1. AFINITOR [Suspect]
     Active Substance: EVEROLIMUS
     Indication: RENAL CANCER
     Dosage: 1 DF OF 10 MG, QD
     Route: 048
     Dates: start: 201510
  2. LOSARTAN. [Concomitant]
     Active Substance: LOSARTAN
     Indication: PRODUCT USED FOR UNKNOWN INDICATION
     Dosage: 1 DF OF 5 MG, QD
     Route: 048
     Dates: start: 2014
  3. METFORMIN HYDROCHLORIDE. [Suspect]
     Active Substance: METFORMIN HYDROCHLORIDE
     Indication: DIABETES MELLITUS
     Dosage: 1 DF OF 850 MG, Q8H
     Route: 048
     Dates: start: 20160406
  4. GLIBENCLAMIDE [Concomitant]
     Active Substance: GLYBURIDE
     Indication: DIABETES MELLITUS
     Dosage: 1 DF OF 5 MG, QD
     Route: 048
     Dates: start: 201402
  5. AMLODIPINE [Concomitant]
     Active Substance: AMLODIPINE BESYLATE
     Indication: HYPERTENSION
     Dosage: 1 DF OF 10 MG, QD
     Route: 048
     Dates: start: 2014

REACTIONS (6)
  - Malaise [Recovering/Resolving]
  - Pancreatic carcinoma [Unknown]
  - Abdominal pain upper [Recovering/Resolving]
  - Second primary malignancy [Unknown]
  - Retching [Recovering/Resolving]
  - Blood glucose increased [Recovering/Resolving]

NARRATIVE: CASE EVENT DATE: 201603
